FAERS Safety Report 7390538-X (Version None)
Quarter: 2011Q2

REPORT INFORMATION
  Report Type: 
  Country: None (occurrence: None)
  Receive Date: 20110403
  Receipt Date: 20091118
  Transmission Date: 20111010
  Serious: Yes (Hospitalization, Other)
  Sender: FDA-Public Use
  Company Number: PHHY2009DE67446

PATIENT

DRUGS (1)
  1. EXTAVIA [Suspect]
     Dosage: UNK
     Route: 058

REACTIONS (4)
  - CYSTITIS [None]
  - DECREASED APPETITE [None]
  - DIZZINESS [None]
  - WHITE BLOOD CELL COUNT INCREASED [None]
